FAERS Safety Report 6433178-9 (Version None)
Quarter: 2009Q4

REPORT INFORMATION
  Report Type: 
  Country: None (occurrence: None)
  Receive Date: 20091109
  Receipt Date: 20091027
  Transmission Date: 20100525
  Serious: Yes (Other)
  Sender: FDA-Public Use
  Company Number: PHEH2009US14601

PATIENT
  Sex: Female

DRUGS (4)
  1. ZOMETA [Suspect]
     Dosage: UNK
     Dates: start: 20090716
  2. ARIMIDEX [Concomitant]
  3. ZOLOFT [Concomitant]
  4. SIMVASTATIN [Concomitant]

REACTIONS (7)
  - DEHYDRATION [None]
  - EYE PAIN [None]
  - GLAUCOMA [None]
  - HEADACHE [None]
  - HYPERSENSITIVITY [None]
  - NAUSEA [None]
  - VOMITING [None]
